FAERS Safety Report 12521985 (Version 3)
Quarter: 2016Q3

REPORT INFORMATION
  Report Type: Spontaneous
  Country: US (occurrence: US)
  Receive Date: 20160701
  Receipt Date: 20160816
  Transmission Date: 20161109
  Serious: Yes (Other)
  Sender: FDA-Public Use
  Company Number: US-JNJFOC-20160622557

PATIENT
  Age: 63 Year
  Sex: Female
  Weight: 86.18 kg

DRUGS (5)
  1. XARELTO [Suspect]
     Active Substance: RIVAROXABAN
     Indication: THROMBOSIS
     Route: 048
     Dates: start: 20160616
  2. LOSARTAN. [Concomitant]
     Active Substance: LOSARTAN
     Indication: HYPERTENSION
     Dosage: STARTED APPROXIMATELY 10 YEARS
     Route: 048
  3. XARELTO [Suspect]
     Active Substance: RIVAROXABAN
     Indication: THROMBOSIS
     Route: 048
     Dates: start: 2015, end: 201606
  4. XARELTO [Suspect]
     Active Substance: RIVAROXABAN
     Indication: THROMBOSIS
     Route: 048
     Dates: start: 20160609, end: 20160615
  5. NORVASC [Concomitant]
     Active Substance: AMLODIPINE BESYLATE
     Indication: HYPERTENSION
     Dosage: APPROXIMATELY 1 YEAR.
     Route: 048
     Dates: start: 2015

REACTIONS (8)
  - Wound haemorrhage [Recovered/Resolved]
  - Bleeding time prolonged [Recovered/Resolved]
  - Limb injury [Recovered/Resolved]
  - Laceration [Unknown]
  - Respiratory arrest [Unknown]
  - Product counterfeit [Unknown]
  - Skin abrasion [Unknown]
  - Injury [Not Recovered/Not Resolved]

NARRATIVE: CASE EVENT DATE: 201606
